FAERS Safety Report 7356631-2 (Version None)
Quarter: 2011Q1

REPORT INFORMATION
  Report Type: 
  Country: None (occurrence: None)
  Receive Date: 20110316
  Receipt Date: 20110304
  Transmission Date: 20110831
  Serious: Yes (Hospitalization)
  Sender: FDA-Public Use
  Company Number: PHHO2010US18829

PATIENT
  Sex: Female

DRUGS (5)
  1. BETA BLOCKING AGENTS [Concomitant]
  2. LIPITOR [Concomitant]
  3. ASPIRIN [Concomitant]
  4. ACE INHIBITOR NOS [Concomitant]
  5. ZORTRESS [Suspect]
     Indication: TRANSPLANT
     Dosage: 2 MG, BID
     Route: 048
     Dates: start: 20051010

REACTIONS (4)
  - CORONARY ARTERY DISEASE [None]
  - MYOCARDIAL INFARCTION [None]
  - CORONARY ARTERY BYPASS [None]
  - CORONARY ARTERY THROMBOSIS [None]
